FAERS Safety Report 10108680 (Version 2)
Quarter: 2016Q1

REPORT INFORMATION
  Report Type: Report from Study
  Country: CA (occurrence: CA)
  Receive Date: 20140425
  Receipt Date: 20160330
  Transmission Date: 20160525
  Serious: Yes (Other)
  Sender: FDA-Public Use
  Company Number: CA-ROCHE-1389865

PATIENT
  Age: 51 Year
  Sex: Male

DRUGS (7)
  1. RITUXAN [Suspect]
     Active Substance: RITUXIMAB
     Dosage: FREQUENCY:  DAY 1, 15
     Route: 042
     Dates: start: 20130417
  2. CELEBREX [Concomitant]
     Active Substance: CELECOXIB
  3. METHOTREXATE [Concomitant]
     Active Substance: METHOTREXATE
  4. RITUXAN [Suspect]
     Active Substance: RITUXIMAB
     Indication: RHEUMATOID ARTHRITIS
     Dosage: FREQUENCY:  DAY 1, 15?LAST DOSE: 17/APR/2013
     Route: 042
     Dates: start: 20120510
  5. COD LIVER OIL [Concomitant]
     Active Substance: COD LIVER OIL
  6. SYNTHROID [Concomitant]
     Active Substance: LEVOTHYROXINE SODIUM
  7. ADALAT [Concomitant]
     Active Substance: NIFEDIPINE

REACTIONS (2)
  - Hypothyroidism [Unknown]
  - Nasopharyngitis [Not Recovered/Not Resolved]

NARRATIVE: CASE EVENT DATE: 20160324
